FAERS Safety Report 4655127-6 (Version None)
Quarter: 2005Q2

REPORT INFORMATION
  Report Type: 
  Country: None (occurrence: None)
  Receive Date: 20050506
  Receipt Date: 20050421
  Transmission Date: 20051028
  Serious: Yes (Other)
  Sender: FDA-Public Use
  Company Number: GB-JNJFOC-20050405515

PATIENT
  Sex: Female
  Weight: 68.7 kg

DRUGS (2)
  1. MICRONOR [Suspect]
     Indication: MENORRHAGIA
     Route: 049
     Dates: start: 20050101, end: 20050317
  2. RANITIDINE [Concomitant]
     Indication: DYSPEPSIA
     Route: 049

REACTIONS (1)
  - CHOLESTASIS [None]
